FAERS Safety Report 7414244-8 (Version None)
Quarter: 2011Q2

REPORT INFORMATION
  Report Type: 
  Country: None (occurrence: None)
  Receive Date: 20110411
  Receipt Date: 20110411
  Transmission Date: 20111010
  Serious: No
  Sender: FDA-Public Use
  Company Number: None

PATIENT
  Age: 42 Year
  Sex: Male

DRUGS (1)
  1. SEVOFLURANE [Suspect]
     Dates: start: 20100329, end: 20100329

REACTIONS (4)
  - JAUNDICE [None]
  - PRURITUS [None]
  - LIVER DISORDER [None]
  - CHOLESTASIS [None]
